FAERS Safety Report 17456569 (Version 1)
Quarter: 2020Q1

REPORT INFORMATION
  Report Type: Spontaneous
  Country: US (occurrence: US)
  Receive Date: 20200225
  Receipt Date: 20200225
  Transmission Date: 20200409
  Serious: No
  Sender: FDA-Public Use
  Company Number: US-PFIZER INC-2020080784

PATIENT
  Age: 65 Year
  Sex: Female

DRUGS (2)
  1. HUMALOG [Concomitant]
     Active Substance: INSULIN LISPRO
     Indication: TYPE 1 DIABETES MELLITUS
     Dosage: ON INSULIN PUMP, TAKE DIFFERENT DOSAGE BASED ON MY BLOOD SUGAR
  2. INLYTA [Suspect]
     Active Substance: AXITINIB
     Indication: METASTATIC RENAL CELL CARCINOMA
     Dosage: 5 MG, 2X/DAY(ONE 5 MG ON MORNING, ONE 5 MG IN EVENING)

REACTIONS (4)
  - Weight decreased [Unknown]
  - Dysphonia [Unknown]
  - Oropharyngeal discomfort [Unknown]
  - Cough [Unknown]
